FAERS Safety Report 19856271 (Version 1)
Quarter: 2021Q3

REPORT INFORMATION
  Report Type: Spontaneous
  Country: GB (occurrence: GB)
  Receive Date: 20210920
  Receipt Date: 20210920
  Transmission Date: 20211014
  Serious: Yes (Hospitalization, Disabling)
  Sender: FDA-Public Use
  Company Number: GB-TEVA-2021-GB-1953926

PATIENT
  Age: 73 Year
  Sex: Male

DRUGS (2)
  1. MIRTAZAPINE. [Concomitant]
     Active Substance: MIRTAZAPINE
     Indication: ILL-DEFINED DISORDER
  2. PALIPERIDONE PALMITATE [Suspect]
     Active Substance: PALIPERIDONE PALMITATE
     Indication: SCHIZOPHRENIA
     Dosage: 100MG TEST DOSE, 2 FURTHER 100MG PER MONTH DOSES THEN INCREASED TO 150MG PER MONTH THEN STOP
     Route: 030
     Dates: start: 20210303, end: 20210509

REACTIONS (1)
  - Myelopathy [Recovered/Resolved with Sequelae]

NARRATIVE: CASE EVENT DATE: 20210501
